FAERS Safety Report 8243278-9 (Version None)
Quarter: 2012Q1

REPORT INFORMATION
  Report Type: 
  Country: None (occurrence: None)
  Receive Date: 20120329
  Receipt Date: 20120321
  Transmission Date: 20120608
  Serious: Yes (Hospitalization)
  Sender: FDA-Public Use
  Company Number: DE-ROCHE-1003206

PATIENT
  Age: 53 Year
  Sex: Female
  Weight: 65.8 kg

DRUGS (4)
  1. VEMURAFENIB [Suspect]
     Dates: start: 20110924
  2. MIRTAZAPINE [Concomitant]
     Dates: start: 20110301
  3. VEMURAFENIB [Suspect]
     Dates: start: 20110928
  4. VEMURAFENIB [Suspect]
     Indication: METASTATIC MALIGNANT MELANOMA
     Dosage: LAST DOSE PRIOR TO SAE 20/SEP/2011
     Route: 048
     Dates: start: 20110906, end: 20110920

REACTIONS (2)
  - INFECTION [None]
  - PYREXIA [None]
